FAERS Safety Report 4751805-9 (Version None)
Quarter: 2005Q3

REPORT INFORMATION
  Report Type: 
  Country: None (occurrence: None)
  Receive Date: 20050819
  Receipt Date: 20050323
  Transmission Date: 20060218
  Serious: Yes (Hospitalization)
  Sender: FDA-Public Use
  Company Number: 241880

PATIENT
  Age: 20 Year
  Sex: Male
  Weight: 79.4 kg

DRUGS (1)
  1. NOVOLIN N [Suspect]
     Indication: DIABETES MELLITUS INSULIN-DEPENDENT
     Dosage: 40 IU, BID, SUBCUTANEOUS
     Route: 058
     Dates: start: 20041227, end: 20050103

REACTIONS (2)
  - DIABETIC KETOACIDOSIS [None]
  - MEDICATION ERROR [None]
